FAERS Safety Report 7971751-7 (Version None)
Quarter: 2011Q4

REPORT INFORMATION
  Report Type: 
  Country: None (occurrence: None)
  Receive Date: 20111212
  Receipt Date: 20111129
  Transmission Date: 20120403
  Serious: Yes (Other)
  Sender: FDA-Public Use
  Company Number: JP-MYLANLABS-2011S1024632

PATIENT
  Sex: Female

DRUGS (2)
  1. CARBOPLATIN [Suspect]
     Indication: OVARIAN CANCER
     Route: 041
  2. PACLITAXEL [Suspect]
     Indication: OVARIAN CANCER
     Route: 041

REACTIONS (3)
  - NEUROPATHY PERIPHERAL [None]
  - NEUROGENIC BLADDER [None]
  - URINARY INCONTINENCE [None]
